FAERS Safety Report 25428570 (Version 1)
Quarter: 2025Q2

REPORT INFORMATION
  Report Type: Spontaneous
  Country: US (occurrence: US)
  Receive Date: 20250612
  Receipt Date: 20250612
  Transmission Date: 20250717
  Serious: Yes (Death)
  Sender: NOVARTIS
  Company Number: US-002147023-NVSC2025US093667

PATIENT
  Age: 51 Year
  Sex: Male

DRUGS (2)
  1. TAFINLAR [Suspect]
     Active Substance: DABRAFENIB MESYLATE
     Indication: Neoplasm
     Dosage: 150 MG, BID
     Route: 048
     Dates: start: 202501
  2. MEKINIST [Suspect]
     Active Substance: TRAMETINIB DIMETHYL SULFOXIDE
     Indication: Neoplasm
     Dosage: 2 MG, QD
     Route: 048
     Dates: start: 202501

REACTIONS (1)
  - Post procedural complication [Fatal]

NARRATIVE: CASE EVENT DATE: 20250526
